FAERS Safety Report 8053926-4 (Version None)
Quarter: 2012Q1

REPORT INFORMATION
  Report Type: 
  Country: None (occurrence: None)
  Receive Date: 20120118
  Receipt Date: 20120103
  Transmission Date: 20120608
  Serious: Yes (Other)
  Sender: FDA-Public Use
  Company Number: US-ELI_LILLY_AND_COMPANY-US201201001420

PATIENT
  Sex: Female

DRUGS (3)
  1. EFFIENT [Suspect]
     Indication: STENT PLACEMENT
     Dosage: 10 MG, QD
     Dates: start: 20100819
  2. OTHER LIPID MODIFYING AGENTS [Concomitant]
  3. ANTIHYPERTENSIVES [Concomitant]
     Dosage: UNK

REACTIONS (7)
  - ALOPECIA [None]
  - DRUG DISPENSING ERROR [None]
  - BLOOD URINE PRESENT [None]
  - CYSTITIS [None]
  - MEDICATION ERROR [None]
  - WHITE BLOOD CELLS URINE POSITIVE [None]
  - CORONARY ARTERIAL STENT INSERTION [None]
